FAERS Safety Report 9425604 (Version 1)
Quarter: 2013Q3

REPORT INFORMATION
  Report Type: Spontaneous
  Country: US (occurrence: US)
  Receive Date: 20130729
  Receipt Date: 20130729
  Transmission Date: 20140515
  Serious: No
  Sender: FDA-Public Use
  Company Number: US-MYLANLABS-2013S1008291

PATIENT
  Sex: Female

DRUGS (3)
  1. LEVOTHYROXINE [Suspect]
     Indication: THYROID DISORDER
  2. LOSARTAN [Suspect]
     Indication: BLOOD PRESSURE INCREASED
  3. TYLENOL PM [Suspect]
     Indication: SLEEP DISORDER

REACTIONS (2)
  - Drug interaction [Not Recovered/Not Resolved]
  - Adverse event [Not Recovered/Not Resolved]
